FAERS Safety Report 9699238 (Version 1)
Quarter: 2013Q4

REPORT INFORMATION
  Report Type: Spontaneous
  Country: US (occurrence: US)
  Receive Date: 20131120
  Receipt Date: 20131120
  Transmission Date: 20140711
  Serious: No
  Sender: FDA-Public Use
  Company Number: US-GILEAD-2008-0015146

PATIENT
  Age: 42 Year
  Sex: Female

DRUGS (3)
  1. LETAIRIS [Suspect]
     Route: 048
  2. KLONOPIN [Concomitant]
     Indication: INSOMNIA
     Route: 048
  3. LUNESTA [Concomitant]
     Indication: INSOMNIA
     Route: 048

REACTIONS (6)
  - Palpitations [Recovered/Resolved]
  - Local swelling [Recovered/Resolved]
  - Hot flush [Recovered/Resolved]
  - Headache [Recovered/Resolved]
  - Nasal congestion [Recovered/Resolved]
  - Fluid retention [Recovered/Resolved]
